FAERS Safety Report 11473822 (Version 1)
Quarter: 2015Q3

REPORT INFORMATION
  Report Type: Spontaneous
  Country: None (occurrence: None)
  Receive Date: 20150908
  Receipt Date: 20150908
  Transmission Date: 20151125
  Serious: Yes (Other)
  Sender: FDA-Public Use
  Company Number: None

PATIENT
  Age: 77 Year
  Sex: Female
  Weight: 90.8 kg

DRUGS (2)
  1. TRANEXAMIC ACID. [Suspect]
     Active Substance: TRANEXAMIC ACID
     Indication: CORONARY ARTERY BYPASS
     Dosage: 10000 MG/100ML
     Route: 042
     Dates: start: 20150608
  2. TRANEXAMIC ACID. [Suspect]
     Active Substance: TRANEXAMIC ACID
     Indication: THROMBIN TIME PROLONGED
     Dosage: 10000 MG/100ML
     Route: 042
     Dates: start: 20150608

REACTIONS (2)
  - Seizure [None]
  - Blood pressure decreased [None]

NARRATIVE: CASE EVENT DATE: 20150608
